FAERS Safety Report 9857261 (Version 1)
Quarter: 2014Q1

REPORT INFORMATION
  Report Type: Spontaneous
  Country: US (occurrence: US)
  Receive Date: 20140130
  Receipt Date: 20140130
  Transmission Date: 20141002
  Serious: No
  Sender: FDA-Public Use
  Company Number: US-GILEAD-2014-0093045

PATIENT
  Age: 39 Year
  Sex: Male

DRUGS (1)
  1. ATRIPLA [Suspect]
     Indication: ACQUIRED IMMUNODEFICIENCY SYNDROME
     Dosage: 1100 MG, UNK
     Route: 065
     Dates: start: 20140104

REACTIONS (6)
  - Pyrexia [Unknown]
  - Erythema [Unknown]
  - Chest discomfort [Unknown]
  - Hyperacusis [Unknown]
  - Muscle fatigue [Unknown]
  - Anxiety [Unknown]
